FAERS Safety Report 21120259 (Version 1)
Quarter: 2022Q3

REPORT INFORMATION
  Report Type: Spontaneous
  Country: ES (occurrence: ES)
  Receive Date: 20220722
  Receipt Date: 20220722
  Transmission Date: 20221027
  Serious: Yes (Other)
  Sender: FDA-Public Use
  Company Number: None

PATIENT
  Age: 82 Year
  Sex: Female
  Weight: 60 kg

DRUGS (6)
  1. RIFAMPIN [Suspect]
     Active Substance: RIFAMPIN
     Indication: Spinal osteoarthritis
     Dosage: 300 MG, BID
     Route: 048
     Dates: start: 20220606
  2. PAROXETINE [Concomitant]
     Active Substance: PAROXETINE
     Indication: Depression
     Dosage: 20 MG, QD
     Route: 048
     Dates: start: 20090924
  3. LEVOFLOXACIN [Concomitant]
     Active Substance: LEVOFLOXACIN
     Indication: Spinal osteoarthritis
     Dosage: 750 MG, QD
     Route: 048
     Dates: start: 20220606
  4. RAMIPRIL [Concomitant]
     Active Substance: RAMIPRIL
     Indication: Essential hypertension
     Dosage: 25 MG, QD
     Route: 048
     Dates: start: 20220602
  5. PARACETAMOL KERN PHARMA [Concomitant]
     Indication: Osteoarthritis
     Dosage: 1 G, TID
     Route: 048
     Dates: start: 20220602
  6. FOLIC ACID [Concomitant]
     Active Substance: FOLIC ACID
     Indication: Spinal osteoarthritis
     Dosage: 5 MG, QD
     Route: 048
     Dates: start: 20220602

REACTIONS (1)
  - Coagulopathy [Recovering/Resolving]

NARRATIVE: CASE EVENT DATE: 20220620
